FAERS Safety Report 21563064 (Version 1)
Quarter: 2022Q4

REPORT INFORMATION
  Report Type: Spontaneous
  Country: US (occurrence: US)
  Receive Date: 20221107
  Receipt Date: 20221107
  Transmission Date: 20230112
  Serious: No
  Sender: FDA-Public Use
  Company Number: US-SA-SAC20221102000282

PATIENT
  Age: 20 Year
  Sex: Female
  Weight: 68.038 kg

DRUGS (1)
  1. DUPIXENT [Suspect]
     Active Substance: DUPILUMAB
     Indication: Dermatitis atopic
     Dosage: 300 MG, QOW
     Route: 058
     Dates: start: 20220616, end: 2022

REACTIONS (6)
  - Injection site irritation [Unknown]
  - Dermatitis atopic [Unknown]
  - Pruritus [Unknown]
  - Hyperhidrosis [Unknown]
  - Scratch [Unknown]
  - Drug ineffective [Unknown]
